FAERS Safety Report 18457492 (Version 1)
Quarter: 2020Q4

REPORT INFORMATION
  Report Type: Spontaneous
  Country: US (occurrence: US)
  Receive Date: 20201030
  Receipt Date: 20201030
  Transmission Date: 20210114
  Serious: No
  Sender: FDA-Public Use
  Company Number: US-FLEXION THERAPEUTICS, INC.-2020FLS000085

PATIENT
  Age: 60 Year
  Sex: Male

DRUGS (3)
  1. ZILRETTA [Suspect]
     Active Substance: TRIAMCINOLONE ACETONIDE
     Route: 014
     Dates: start: 20200210, end: 20200210
  2. LOSARTAN POTASSIUM. [Concomitant]
     Active Substance: LOSARTAN POTASSIUM
     Indication: HYPERTENSION
  3. ZILRETTA [Suspect]
     Active Substance: TRIAMCINOLONE ACETONIDE
     Indication: PRODUCT USED FOR UNKNOWN INDICATION
     Route: 014
     Dates: start: 20200120, end: 20200120

REACTIONS (9)
  - Joint range of motion decreased [Unknown]
  - Blood pressure increased [Unknown]
  - Alopecia [Unknown]
  - Anxiety [Unknown]
  - Drug ineffective [Unknown]
  - Hair growth abnormal [Unknown]
  - Muscular weakness [Unknown]
  - Aggression [Unknown]
  - Mood swings [Unknown]

NARRATIVE: CASE EVENT DATE: 2020
